FAERS Safety Report 9907183 (Version 1)
Quarter: 2014Q1

REPORT INFORMATION
  Report Type: Spontaneous
  Country: US (occurrence: US)
  Receive Date: 20140218
  Receipt Date: 20140218
  Transmission Date: 20141002
  Serious: Yes (Hospitalization)
  Sender: FDA-Public Use
  Company Number: US-B.I. PHARMACEUTICALS,INC./RIDGEFIELD-2014-BI-06162BP

PATIENT
  Sex: Female
  Weight: 51 kg

DRUGS (1)
  1. SPIRIVA [Suspect]
     Indication: EMPHYSEMA
     Dosage: 18 MCG
     Route: 055
     Dates: start: 2004

REACTIONS (9)
  - Ulcer haemorrhage [Recovered/Resolved]
  - Cataract [Recovered/Resolved]
  - Cataract [Recovered/Resolved]
  - Hiatus hernia [Not Recovered/Not Resolved]
  - Anaemia [Not Recovered/Not Resolved]
  - Hearing impaired [Not Recovered/Not Resolved]
  - Melaena [Recovered/Resolved]
  - Abnormal loss of weight [Recovered/Resolved]
  - Retinal disorder [Recovered/Resolved]
